FAERS Safety Report 5269674-X (Version None)
Quarter: 2007Q1

REPORT INFORMATION
  Report Type: 
  Country: None (occurrence: None)
  Receive Date: 20070313
  Receipt Date: 20070309
  Transmission Date: 20070707
  Serious: Yes (Hospitalization)
  Sender: FDA-Public Use
  Company Number: TCI2007A00856

PATIENT
  Age: 68 Year
  Sex: Female

DRUGS (2)
  1. TAKEPRON OD TABLETS (LANSOPRAZOLE) (TABLETS) [Suspect]
     Indication: REFLUX OESOPHAGITIS
     Dosage: 15 MG (15 MG, 1 IN 1 D) PER ORAL
     Route: 048
     Dates: end: 20070124
  2. NEUROTROPIN (ORGAN LYSATE, STANDARDIZED) TABLETS [Concomitant]

REACTIONS (2)
  - BLOOD CREATINE PHOSPHOKINASE INCREASED [None]
  - MYALGIA [None]
